FAERS Safety Report 10023342 (Version 2)
Quarter: 2014Q2

REPORT INFORMATION
  Report Type: Report from Study
  Country: JP (occurrence: JP)
  Receive Date: 20140320
  Receipt Date: 20140606
  Transmission Date: 20141212
  Serious: Yes (Other)
  Sender: FDA-Public Use
  Company Number: JP-UCBSA-114590

PATIENT
  Sex: Male

DRUGS (8)
  1. LEVETIRACETAM [Suspect]
     Indication: SIMPLE PARTIAL SEIZURES
     Dosage: 500 MG, 2X/DAY (BID)
     Route: 048
     Dates: start: 20131112, end: 20131219
  2. NU-LOTAN [Concomitant]
     Route: 048
     Dates: end: 20131114
  3. LUVOX [Concomitant]
     Route: 048
     Dates: end: 20131114
  4. HARNAL [Concomitant]
     Route: 048
     Dates: end: 20131114
  5. MAGLAX [Concomitant]
     Route: 048
     Dates: end: 20131114
  6. GOODMIN [Concomitant]
     Route: 048
     Dates: end: 20131219
  7. DEPAKENE [Concomitant]
     Route: 048
     Dates: end: 20131219
  8. ATARAX-P [Concomitant]
     Route: 048
     Dates: start: 20131115, end: 20131219

REACTIONS (1)
  - Pneumonia aspiration [Unknown]
